FAERS Safety Report 17751897 (Version 3)
Quarter: 2020Q2

REPORT INFORMATION
  Report Type: Report from Study
  Country: IT (occurrence: IT)
  Receive Date: 20200506
  Receipt Date: 20200619
  Transmission Date: 20200714
  Serious: Yes (Hospitalization)
  Sender: FDA-Public Use
  Company Number: IT-PFIZER INC-2020178276

PATIENT
  Age: 45 Year
  Sex: Female

DRUGS (5)
  1. VENLAFAXINE [Concomitant]
     Active Substance: VENLAFAXINE HYDROCHLORIDE
     Dosage: 75 MG
  2. DEPAKIN [Concomitant]
     Active Substance: VALPROATE SODIUM
     Dosage: 600 MG
  3. PARACETAMOL [Suspect]
     Active Substance: ACETAMINOPHEN
     Dosage: 8000 MG, SINGLE
     Route: 048
     Dates: start: 20200323, end: 20200323
  4. QUETIAPINE. [Concomitant]
     Active Substance: QUETIAPINE
     Dosage: 400 MG
  5. TAVOR (LORAZEPAM) [Suspect]
     Active Substance: LORAZEPAM
     Dosage: 10 MG, SINGLE
     Route: 048
     Dates: start: 20200323, end: 20200323

REACTIONS (3)
  - Drug abuse [Recovering/Resolving]
  - Sopor [Recovering/Resolving]
  - Intentional self-injury [Unknown]

NARRATIVE: CASE EVENT DATE: 20200323
